FAERS Safety Report 7270963-8 (Version None)
Quarter: 2011Q1

REPORT INFORMATION
  Report Type: 
  Country: None (occurrence: None)
  Receive Date: 20110202
  Receipt Date: 20110131
  Transmission Date: 20110831
  Serious: Yes (Life-Threatening, Hospitalization, Other)
  Sender: FDA-Public Use
  Company Number: BR-PFIZER INC-2011011430

PATIENT
  Age: 68 Year
  Sex: Male
  Weight: 70.5 kg

DRUGS (4)
  1. AMLODIPINE [Concomitant]
     Dosage: UNK
     Dates: start: 20100701
  2. SUNITINIB MALATE [Suspect]
     Indication: RENAL CANCER METASTATIC
     Dosage: 50MG DAILY DOSING (4 WEEKS ON / 2 WEEKS OFF)
     Route: 048
     Dates: start: 20100429, end: 20100629
  3. ATENOLOL [Concomitant]
     Dosage: UNK
     Dates: start: 20100701
  4. HYDROCHLOROTHIAZIDE [Concomitant]
     Dosage: UNK
     Dates: start: 20100701

REACTIONS (2)
  - AORTIC DISSECTION [None]
  - MEDIASTINAL DISORDER [None]
